FAERS Safety Report 12911732 (Version 11)
Quarter: 2018Q2

REPORT INFORMATION
  Report Type: Spontaneous
  Country: BR (occurrence: BR)
  Receive Date: 20161104
  Receipt Date: 20180615
  Transmission Date: 20180711
  Serious: Yes (Hospitalization, Other)
  Sender: FDA-Public Use
  Company Number: BR-GLAXOSMITHKLINE-BR2016GSK144075

PATIENT
  Sex: Female
  Weight: 68 kg

DRUGS (14)
  1. BENLYSTA [Suspect]
     Active Substance: BELIMUMAB
     Dosage: UNK (930 MG)
     Dates: start: 20170508
  2. PREDNISONE. [Concomitant]
     Active Substance: PREDNISONE
     Indication: PRODUCT USED FOR UNKNOWN INDICATION
     Dosage: UNK
  3. BENLYSTA [Suspect]
     Active Substance: BELIMUMAB
     Dosage: UNK, CYC
     Dates: start: 20161124
  4. BENLYSTA [Suspect]
     Active Substance: BELIMUMAB
     Dosage: UNK
     Dates: start: 20170911
  5. BENLYSTA [Suspect]
     Active Substance: BELIMUMAB
     Dosage: UNK
     Dates: start: 20170127
  6. BENLYSTA [Suspect]
     Active Substance: BELIMUMAB
     Dosage: UNK
     Dates: start: 20170224
  7. BENLYSTA [Suspect]
     Active Substance: BELIMUMAB
     Dosage: UNK
     Dates: start: 20170804
  8. BENLYSTA [Suspect]
     Active Substance: BELIMUMAB
     Indication: SYSTEMIC LUPUS ERYTHEMATOSUS
     Dosage: UNK
     Dates: start: 20160916
  9. BENLYSTA [Suspect]
     Active Substance: BELIMUMAB
     Dosage: UNK (820 MG)
     Dates: start: 20170410
  10. REUQUINOL (HYDROXYCHLOROQUINE SULFATE) [Concomitant]
     Indication: PRODUCT USED FOR UNKNOWN INDICATION
     Dosage: UNK
  11. AZATHIOPRINE. [Concomitant]
     Active Substance: AZATHIOPRINE
     Indication: PRODUCT USED FOR UNKNOWN INDICATION
     Dosage: UNK
  12. BENLYSTA [Suspect]
     Active Substance: BELIMUMAB
     Dosage: UNK, CYC
     Dates: start: 20161223
  13. KETOPROFEN LYSINE [Concomitant]
     Active Substance: KETOPROFEN LYSINE
     Indication: PRODUCT USED FOR UNKNOWN INDICATION
     Dosage: UNK
  14. BENLYSTA [Suspect]
     Active Substance: BELIMUMAB
     Dosage: UNK
     Dates: start: 20171010

REACTIONS (8)
  - Aggression [Unknown]
  - Inappropriate schedule of drug administration [Recovered/Resolved]
  - Drug dose omission [Recovered/Resolved]
  - Circumstance or information capable of leading to medication error [Recovered/Resolved]
  - Tendon rupture [Recovered/Resolved]
  - Pyelonephritis [Unknown]
  - Nausea [Recovered/Resolved]
  - Overdose [Unknown]
